FAERS Safety Report 20023732 (Version 1)
Quarter: 2021Q4

REPORT INFORMATION
  Report Type: Report from Study
  Country: GB (occurrence: GB)
  Receive Date: 20211102
  Receipt Date: 20211102
  Transmission Date: 20220303
  Serious: Yes (Death, Other)
  Sender: FDA-Public Use
  Company Number: GB-BRISTOL-MYERS SQUIBB COMPANY-BMS-2021-114716

PATIENT
  Age: 62 Year
  Sex: Female

DRUGS (1)
  1. ABATACEPT [Suspect]
     Active Substance: ABATACEPT
     Indication: Rheumatoid arthritis
     Dosage: 125 MILLIGRAM, QWK
     Route: 058
     Dates: start: 20190117

REACTIONS (2)
  - Death [Fatal]
  - Cerebrovascular accident [Unknown]

NARRATIVE: CASE EVENT DATE: 20211023
